FAERS Safety Report 4400988-9 (Version None)
Quarter: 2004Q3

REPORT INFORMATION
  Report Type: 
  Country: None (occurrence: None)
  Receive Date: 20040907
  Receipt Date: 20030908
  Transmission Date: 20050211
  Serious: Yes (Other)
  Sender: FDA-Public Use
  Company Number: US-BRISTOL-MYERS SQUIBB COMPANY-12377115

PATIENT

DRUGS (1)
  1. COUMADIN [Suspect]

REACTIONS (1)
  - THROMBOCYTOPENIA [None]
